FAERS Safety Report 10142766 (Version 1)
Quarter: 2014Q2

REPORT INFORMATION
  Report Type: Spontaneous
  Country: US (occurrence: None)
  Receive Date: 20140429
  Receipt Date: 20140429
  Transmission Date: 20141212
  Serious: No
  Sender: FDA-Public Use
  Company Number: None

PATIENT
  Age: 80 Year
  Sex: Male
  Weight: 71.67 kg

DRUGS (4)
  1. TMP/SMX [Suspect]
     Indication: URINARY TRACT INFECTION
     Route: 048
     Dates: start: 20140228, end: 20140307
  2. VITAMINS [Concomitant]
  3. MINERALS [Concomitant]
  4. HERBS [Concomitant]

REACTIONS (3)
  - Rash [None]
  - Rash erythematous [None]
  - Rash pruritic [None]
